FAERS Safety Report 23914948 (Version 1)
Quarter: 2024Q2

REPORT INFORMATION
  Report Type: Spontaneous
  Country: US (occurrence: US)
  Receive Date: 20240529
  Receipt Date: 20240529
  Transmission Date: 20240715
  Serious: No
  Sender: FDA-Public Use
  Company Number: US-PERRIGO-24US001334

PATIENT
  Age: 66 Year
  Sex: Female
  Weight: 86.168 kg

DRUGS (2)
  1. MINOXIDIL [Suspect]
     Active Substance: MINOXIDIL
     Indication: Alopecia
     Dosage: APPROX. 1 CAPFUL, ONCE
     Route: 061
     Dates: start: 20240128, end: 20240128
  2. MINOXIDIL [Suspect]
     Active Substance: MINOXIDIL
     Dosage: APPROX. 2 CAPFULS, ONCE
     Route: 061
     Dates: start: 20240201, end: 20240201

REACTIONS (6)
  - Erythema [Not Recovered/Not Resolved]
  - Hot flush [Not Recovered/Not Resolved]
  - Application site warmth [Not Recovered/Not Resolved]
  - Hair colour changes [Not Recovered/Not Resolved]
  - Incorrect dose administered [Unknown]
  - Off label use [Unknown]

NARRATIVE: CASE EVENT DATE: 20240128
